FAERS Safety Report 19205253 (Version 1)
Quarter: 2021Q2

REPORT INFORMATION
  Report Type: Spontaneous
  Country: US (occurrence: US)
  Receive Date: 20210430
  Receipt Date: 20210430
  Transmission Date: 20210717
  Serious: Yes (Hospitalization)
  Sender: FDA-Public Use
  Company Number: None

PATIENT
  Age: 62 Year
  Sex: Male

DRUGS (9)
  1. CELECOXIB. [Concomitant]
     Active Substance: CELECOXIB
  2. METHOTREXATE. [Concomitant]
     Active Substance: METHOTREXATE
  3. FLEXTOUCH [Concomitant]
     Active Substance: DEVICE
  4. ENBREL [Suspect]
     Active Substance: ETANERCEPT
     Indication: RHEUMATOID ARTHRITIS
     Dosage: 1 PEN QWK SQ
     Route: 058
     Dates: start: 20180124
  5. CELEBREX [Concomitant]
     Active Substance: CELECOXIB
  6. FOLIC ACID. [Concomitant]
     Active Substance: FOLIC ACID
  7. LEVEMIR [Concomitant]
     Active Substance: INSULIN DETEMIR
  8. TRAMADOL HCL [Concomitant]
     Active Substance: TRAMADOL HYDROCHLORIDE
  9. METFORMIN [Concomitant]
     Active Substance: METFORMIN HYDROCHLORIDE

REACTIONS (2)
  - Diabetes mellitus [None]
  - Therapy interrupted [None]

NARRATIVE: CASE EVENT DATE: 20210330
